FAERS Safety Report 10331001 (Version 1)
Quarter: 2014Q3

REPORT INFORMATION
  Report Type: Spontaneous
  Country: US (occurrence: None)
  Receive Date: 20140721
  Receipt Date: 20140721
  Transmission Date: 20150326
  Serious: Yes (Hospitalization)
  Sender: FDA-Public Use
  Company Number: None

PATIENT
  Age: 62 Year
  Sex: Male
  Weight: 121.2 kg

DRUGS (2)
  1. GABAPENTIN. [Suspect]
     Active Substance: GABAPENTIN
     Indication: CONVULSION
     Route: 048
     Dates: start: 20071212, end: 20140709
  2. GABAPENTIN. [Suspect]
     Active Substance: GABAPENTIN
     Indication: ANXIETY
     Route: 048
     Dates: start: 20071212, end: 20140709

REACTIONS (7)
  - Lethargy [None]
  - Drug withdrawal syndrome [None]
  - Depressed level of consciousness [None]
  - Labile blood pressure [None]
  - Renal failure acute [None]
  - Hypotension [None]
  - Toxicity to various agents [None]

NARRATIVE: CASE EVENT DATE: 20140709
